FAERS Safety Report 15501581 (Version 1)
Quarter: 2018Q4

REPORT INFORMATION
  Report Type: Spontaneous
  Country: IT (occurrence: IT)
  Receive Date: 20181015
  Receipt Date: 20181015
  Transmission Date: 20190205
  Serious: Yes (Other)
  Sender: FDA-Public Use
  Company Number: IT-PTC THERAPEUTICS, INC.-IT-2018PTC001081

PATIENT

DRUGS (1)
  1. TRANSLARNA [Suspect]
     Active Substance: ATALUREN
     Indication: PRODUCT USED FOR UNKNOWN INDICATION

REACTIONS (1)
  - Tibia fracture [Unknown]
